FAERS Safety Report 9501666 (Version 3)
Quarter: 2013Q4

REPORT INFORMATION
  Report Type: Spontaneous
  Country: US (occurrence: None)
  Receive Date: 20130107
  Receipt Date: 20131226
  Transmission Date: 20140711
  Serious: Yes (Other)
  Sender: FDA-Public Use
  Company Number: PHEH2012US022689

PATIENT
  Age: 36 Year
  Sex: Female
  Weight: 66.7 kg

DRUGS (7)
  1. GILENYA (FINGOLIMOD) CAPSULE, 0.5MG [Suspect]
     Indication: MULTIPLE SCLEROSIS
     Route: 048
     Dates: start: 20121107
  2. AMPYRA (FAMPRIDINE) [Concomitant]
  3. TEGRETOL (CARBAMAZEPINE) UNKNOWN [Concomitant]
  4. MIRALAX [Concomitant]
  5. LANTUS (INSULIN GLARGINE) [Concomitant]
  6. HUMALOG (INSULIN LISPRO) [Concomitant]
  7. SIMVASTATIN [Concomitant]

REACTIONS (7)
  - Dysgraphia [None]
  - Tremor [None]
  - Blood glucose decreased [None]
  - Limb discomfort [None]
  - Speech disorder [None]
  - Fatigue [None]
  - Hypoglycaemia [None]
